FAERS Safety Report 5800941-4 (Version None)
Quarter: 2008Q3

REPORT INFORMATION
  Report Type: 
  Country: None (occurrence: None)
  Receive Date: 20080703
  Receipt Date: 20080627
  Transmission Date: 20090109
  Serious: Yes (Death)
  Sender: FDA-Public Use
  Company Number: CA-BOEHRINGER INGELHEIM GMBH, GERMANY-2008-BP-09990RO

PATIENT
  Age: 9 Year
  Sex: Female

DRUGS (11)
  1. METHOTREXATE [Suspect]
     Indication: ACUTE LYMPHOCYTIC LEUKAEMIA
     Route: 037
  2. PREDNISONE 50MG TAB [Suspect]
     Indication: ACUTE LYMPHOCYTIC LEUKAEMIA
  3. CEFTAZIDIME [Suspect]
     Indication: PYREXIA
  4. CYTARABINE [Suspect]
     Indication: ACUTE LYMPHOCYTIC LEUKAEMIA
     Route: 037
  5. HYDROCORTISONE [Suspect]
     Indication: ACUTE LYMPHOCYTIC LEUKAEMIA
  6. CLOFARABINE [Suspect]
     Indication: ACUTE LYMPHOCYTIC LEUKAEMIA
  7. VANCOMYCIN [Concomitant]
     Indication: OEDEMA
  8. VANCOMYCIN [Concomitant]
     Indication: STOMATITIS
  9. VANCOMYCIN [Concomitant]
     Indication: ERYTHEMA
  10. MEROPENEM [Concomitant]
     Indication: PYREXIA
  11. AMPHOTERICIN B [Concomitant]
     Indication: PYREXIA

REACTIONS (3)
  - DRUG INTERACTION [None]
  - HEPATOTOXICITY [None]
  - TOXIC EPIDERMAL NECROLYSIS [None]
